FAERS Safety Report 12256346 (Version 1)
Quarter: 2016Q2

REPORT INFORMATION
  Report Type: Spontaneous
  Country: GB (occurrence: GB)
  Receive Date: 20160412
  Receipt Date: 20160412
  Transmission Date: 20160815
  Serious: Yes (Hospitalization)
  Sender: FDA-Public Use
  Company Number: GB-TEVA-649499ACC

PATIENT
  Age: 87 Year
  Sex: Male

DRUGS (8)
  1. PERINDOPRIL [Concomitant]
     Active Substance: PERINDOPRIL
  2. MORPHINE SULFATE. [Suspect]
     Active Substance: MORPHINE SULFATE
     Indication: PAIN
     Dosage: 20 MILLIGRAM DAILY;
     Route: 048
     Dates: start: 20160318, end: 20160321
  3. SILDENAFIL. [Concomitant]
     Active Substance: SILDENAFIL
     Indication: ERECTILE DYSFUNCTION
  4. WARFARIN [Concomitant]
     Active Substance: WARFARIN
     Dates: end: 20160217
  5. MORPHINE SULPHATE [Suspect]
     Active Substance: MORPHINE SULFATE
     Indication: PAIN
     Dosage: 40 MILLIGRAM DAILY; AS REQUIRED.
     Route: 048
     Dates: start: 20160318, end: 20160321
  6. ASPIRIN. [Concomitant]
     Active Substance: ASPIRIN
  7. ATORVASTATIN [Concomitant]
     Active Substance: ATORVASTATIN
  8. TAMSULOSIN [Suspect]
     Active Substance: TAMSULOSIN
     Indication: BENIGN PROSTATIC HYPERPLASIA
     Dosage: 400 MICROGRAM DAILY;
     Route: 048
     Dates: start: 20160222

REACTIONS (2)
  - Hypotension [Recovered/Resolved]
  - Circulatory collapse [Recovered/Resolved]

NARRATIVE: CASE EVENT DATE: 20160321
